FAERS Safety Report 23344112 (Version 1)
Quarter: 2023Q4

REPORT INFORMATION
  Report Type: Report from Study
  Country: KR (occurrence: KR)
  Receive Date: 20231227
  Receipt Date: 20231227
  Transmission Date: 20240110
  Serious: Yes (Other)
  Sender: FDA-Public Use
  Company Number: KR-JNJFOC-20231251970

PATIENT

DRUGS (12)
  1. TOPAMAX [Suspect]
     Active Substance: TOPIRAMATE
     Indication: Epilepsy
     Route: 048
  2. LACOSAMIDE [Concomitant]
     Active Substance: LACOSAMIDE
  3. PERAMPANEL [Concomitant]
     Active Substance: PERAMPANEL
  4. VALPROATE [Concomitant]
     Active Substance: VALPROIC ACID
  5. RUFINAMIDE [Concomitant]
     Active Substance: RUFINAMIDE
  6. LAMOTRIGINE [Concomitant]
     Active Substance: LAMOTRIGINE
  7. PREGABALIN [Concomitant]
     Active Substance: PREGABALIN
  8. ZONISAMIDE [Concomitant]
     Active Substance: ZONISAMIDE
  9. LEVETIRACETAM [Concomitant]
     Active Substance: LEVETIRACETAM
  10. CLOBAZAM [Concomitant]
     Active Substance: CLOBAZAM
  11. VIGABATRIN [Concomitant]
     Active Substance: VIGABATRIN
  12. LORAZEPAM [Concomitant]
     Active Substance: LORAZEPAM

REACTIONS (19)
  - Psychotic symptom [Unknown]
  - Encephalopathy [Unknown]
  - Oedema peripheral [Unknown]
  - Drug ineffective [Unknown]
  - Dysarthria [Unknown]
  - Headache [Unknown]
  - Gastrointestinal disorder [Unknown]
  - Ataxia [Unknown]
  - Hyperammonaemia [Unknown]
  - Diplopia [Unknown]
  - Somnolence [Unknown]
  - Dizziness [Unknown]
  - Nystagmus [Unknown]
  - Tremor [Unknown]
  - Fatigue [Unknown]
  - Cognitive disorder [Unknown]
  - Weight increased [Unknown]
  - Weight decreased [Unknown]
  - Alopecia [Unknown]
